FAERS Safety Report 8115401-8 (Version None)
Quarter: 2012Q1

REPORT INFORMATION
  Report Type: 
  Country: None (occurrence: None)
  Receive Date: 20120206
  Receipt Date: 20120206
  Transmission Date: 20120608
  Serious: Yes (Hospitalization)
  Sender: FDA-Public Use
  Company Number: None

PATIENT
  Age: 23 Year
  Sex: Female
  Weight: 55.791 kg

DRUGS (1)
  1. CIPROFLOXACIN [Suspect]
     Indication: URINARY TRACT INFECTION
     Dosage: 250 MG
     Route: 048
     Dates: start: 20120203, end: 20120206

REACTIONS (5)
  - ANXIETY [None]
  - RESTLESSNESS [None]
  - HYPOAESTHESIA [None]
  - PARAESTHESIA [None]
  - DEEP VEIN THROMBOSIS [None]
